FAERS Safety Report 16401878 (Version 1)
Quarter: 2019Q2

REPORT INFORMATION
  Report Type: Spontaneous
  Country: US (occurrence: US)
  Receive Date: 20190607
  Receipt Date: 20190607
  Transmission Date: 20190711
  Serious: Yes (Other)
  Sender: FDA-Public Use
  Company Number: US-PRINSTON PHARMACEUTICAL INC.-2019PRN00551

PATIENT
  Sex: Female

DRUGS (3)
  1. CLONAZEPAM (MYLAN) [Concomitant]
  2. CLONAZEPAM. [Suspect]
     Active Substance: CLONAZEPAM
  3. KLONOPIN [Concomitant]
     Active Substance: CLONAZEPAM

REACTIONS (7)
  - Insomnia [Unknown]
  - Thyroxine increased [Unknown]
  - Tri-iodothyronine increased [Unknown]
  - Cataract [Unknown]
  - Memory impairment [Unknown]
  - Depressed mood [Unknown]
  - Headache [Unknown]
